FAERS Safety Report 25873696 (Version 1)
Quarter: 2025Q4

REPORT INFORMATION
  Report Type: Spontaneous
  Country: US (occurrence: US)
  Receive Date: 20251002
  Receipt Date: 20251002
  Transmission Date: 20260117
  Serious: No
  Sender: INTRA-CELLULAR THERAPIES
  Company Number: US-INTRA-CELLULAR THERAPIES, INC.-2025ICT01435

PATIENT
  Age: 22 Year
  Sex: Female

DRUGS (3)
  1. CAPLYTA [Suspect]
     Active Substance: LUMATEPERONE
     Indication: Bipolar disorder
     Dosage: 21 MG
  2. LITHIUM [Concomitant]
     Active Substance: LITHIUM
     Dosage: LOW DOSE
  3. LAMICTAL [Concomitant]
     Active Substance: LAMOTRIGINE
     Dosage: LOW DOSE

REACTIONS (6)
  - Palpitations [Unknown]
  - Paraesthesia [Unknown]
  - Migraine [Unknown]
  - Dizziness [Unknown]
  - Headache [Unknown]
  - Nausea [Unknown]
